FAERS Safety Report 22285962 (Version 1)
Quarter: 2023Q2

REPORT INFORMATION
  Report Type: Report from Study
  Country: CO (occurrence: CO)
  Receive Date: 20230505
  Receipt Date: 20230505
  Transmission Date: 20230721
  Serious: Yes (Death)
  Sender: FDA-Public Use
  Company Number: CO-JNJFOC-20230501134

PATIENT
  Age: 93 Year
  Sex: Female
  Weight: 38 kg

DRUGS (1)
  1. IMBRUVICA [Suspect]
     Active Substance: IBRUTINIB
     Indication: Mantle cell lymphoma
     Route: 048
     Dates: start: 20221220, end: 20230414

REACTIONS (1)
  - Death [Fatal]

NARRATIVE: CASE EVENT DATE: 20230415
